FAERS Safety Report 10305952 (Version 1)
Quarter: 2014Q3

REPORT INFORMATION
  Report Type: Spontaneous
  Country: JP (occurrence: None)
  Receive Date: 20140711
  Receipt Date: 20140711
  Transmission Date: 20150326
  Serious: Yes (Hospitalization)
  Sender: FDA-Public Use
  Company Number: JP-016239

PATIENT
  Sex: Male

DRUGS (1)
  1. DEGARELIX [Suspect]
     Active Substance: DEGARELIX
     Indication: PROSTATE CANCER
     Route: 058
     Dates: end: 20140626

REACTIONS (3)
  - Pyrexia [None]
  - Intentional product misuse [None]
  - Injection site cellulitis [None]

NARRATIVE: CASE EVENT DATE: 20140626
